FAERS Safety Report 6258314-9 (Version None)
Quarter: 2009Q3

REPORT INFORMATION
  Report Type: 
  Country: None (occurrence: None)
  Receive Date: 20090707
  Receipt Date: 20090702
  Transmission Date: 20100115
  Serious: Yes (Death)
  Sender: FDA-Public Use
  Company Number: JP-NOVOPROD-289000

PATIENT
  Sex: Female
  Weight: 40 kg

DRUGS (4)
  1. LEVEMIR [Suspect]
     Indication: TYPE 2 DIABETES MELLITUS
     Dosage: UNK, QD
     Route: 058
     Dates: start: 20081226
  2. BIGUANIDE [Concomitant]
  3. ALGLUCOSIDASE ALFA [Concomitant]
  4. THIAZOLIDINEDIONES [Concomitant]

REACTIONS (1)
  - DEATH [None]
